FAERS Safety Report 24188898 (Version 1)
Quarter: 2024Q3

REPORT INFORMATION
  Report Type: Spontaneous
  Country: US (occurrence: US)
  Receive Date: 20240808
  Receipt Date: 20240808
  Transmission Date: 20241017
  Serious: No
  Sender: OTSUKA
  Company Number: US-OTSUKA-2024_004980

PATIENT
  Age: 36 Year
  Sex: Female
  Weight: 53.52 kg

DRUGS (6)
  1. ABILIFY MAINTENA [Suspect]
     Active Substance: ARIPIPRAZOLE
     Indication: Bipolar disorder
     Dosage: 400 MG, QM
     Route: 065
     Dates: start: 202307
  2. ABILIFY [Suspect]
     Active Substance: ARIPIPRAZOLE
     Indication: Bipolar disorder
     Dosage: 10 MG, QD
     Route: 048
  3. ARIPIPRAZOLE [Suspect]
     Active Substance: ARIPIPRAZOLE
     Indication: Bipolar disorder
     Dosage: 15 MG, QD
     Route: 048
     Dates: start: 202401
  4. ARIPIPRAZOLE [Suspect]
     Active Substance: ARIPIPRAZOLE
     Dosage: 30 MG, QD
     Route: 048
  5. TRAZODONE [Suspect]
     Active Substance: TRAZODONE HYDROCHLORIDE
     Indication: Sleep disorder
     Dosage: 50 MG
     Route: 065
     Dates: start: 202307
  6. XANAX [Suspect]
     Active Substance: ALPRAZOLAM
     Indication: Anxiety
     Dosage: 0.25 MG
     Route: 065
     Dates: start: 202307

REACTIONS (10)
  - Drug intolerance [Not Recovered/Not Resolved]
  - Injection site pain [Unknown]
  - Insomnia [Not Recovered/Not Resolved]
  - Tremor [Not Recovered/Not Resolved]
  - Fatigue [Unknown]
  - Somnolence [Unknown]
  - Product dose omission issue [Unknown]
  - Drug effect less than expected [Not Recovered/Not Resolved]
  - Treatment noncompliance [Unknown]
  - Product use issue [Not Recovered/Not Resolved]

NARRATIVE: CASE EVENT DATE: 20230701
